FAERS Safety Report 4584136-0 (Version None)
Quarter: 2005Q1

REPORT INFORMATION
  Report Type: 
  Country: None (occurrence: None)
  Receive Date: 20050216
  Receipt Date: 20050207
  Transmission Date: 20050727
  Serious: Yes (Hospitalization, Other)
  Sender: FDA-Public Use
  Company Number: SA-BRISTOL-MYERS SQUIBB COMPANY-12853032

PATIENT
  Age: 38 Year
  Sex: Female

DRUGS (3)
  1. WARFARIN SODIUM [Suspect]
     Indication: LOBAR PNEUMONIA
     Dosage: 10 MG BOLUS FOR 2 DAYS FOLLOWED BY 5 MG/D FOR A DURATION OF 5 DAYS
     Route: 040
  2. WARFARIN SODIUM [Suspect]
     Indication: PULMONARY EMBOLISM
     Dosage: 10 MG BOLUS FOR 2 DAYS FOLLOWED BY 5 MG/D FOR A DURATION OF 5 DAYS
     Route: 040
  3. HEPARIN [Suspect]
     Dosage: STOPPED DAY WARFARIN SODIUM WAS INITIATED

REACTIONS (13)
  - BLOOD BLISTER [None]
  - BREAST CANCER [None]
  - BREAST NECROSIS [None]
  - ECCHYMOSIS [None]
  - HAEMOGLOBIN DECREASED [None]
  - INFLAMMATORY CARCINOMA OF THE BREAST [None]
  - PALLOR [None]
  - PEAU D'ORANGE [None]
  - SKIN DISCOLOURATION [None]
  - SKIN GRAFT [None]
  - SKIN NECROSIS [None]
  - TACHYCARDIA [None]
  - TACHYPNOEA [None]
